FAERS Safety Report 20171941 (Version 4)
Quarter: 2022Q2

REPORT INFORMATION
  Report Type: Report from Study
  Country: US (occurrence: US)
  Receive Date: 20211210
  Receipt Date: 20220418
  Transmission Date: 20220721
  Serious: Yes (Hospitalization, Other)
  Sender: FDA-Public Use
  Company Number: US-NOVARTISTESTPH-NVSC2021US282038

PATIENT
  Age: 30 Year
  Sex: Female
  Weight: 74.84 kg

DRUGS (1)
  1. KESIMPTA [Suspect]
     Active Substance: OFATUMUMAB
     Indication: Product used for unknown indication
     Dosage: 20 MG, QMO
     Route: 058
     Dates: start: 20211202

REACTIONS (6)
  - Intervertebral disc disorder [Recovering/Resolving]
  - Paralysis [Recovering/Resolving]
  - Muscle twitching [Recovering/Resolving]
  - Burning sensation [Recovered/Resolved]
  - Hypoaesthesia [Recovering/Resolving]
  - Pyrexia [Recovering/Resolving]

NARRATIVE: CASE EVENT DATE: 20211202
